FAERS Safety Report 19707095 (Version 8)
Quarter: 2023Q2

REPORT INFORMATION
  Report Type: Report from Study
  Country: DE (occurrence: DE)
  Receive Date: 20210817
  Receipt Date: 20230427
  Transmission Date: 20230722
  Serious: Yes (Other)
  Sender: FDA-Public Use
  Company Number: DE-002147023-PHHY2019DE091441

PATIENT
  Sex: Female

DRUGS (15)
  1. LETROZOLE [Suspect]
     Active Substance: LETROZOLE
     Indication: Breast cancer metastatic
     Dosage: (2.5 MG, (28 PROBABLY MEANT DAYS)/START:26-DEC-2
     Route: 048
     Dates: start: 20181226
  2. KISQALI [Suspect]
     Active Substance: RIBOCICLIB
     Indication: Breast cancer metastatic
     Dosage: 600 MILLIGRAM (21 DAYS INTAKE, 7 DAYS PAUSE)
     Route: 048
     Dates: end: 20190102
  3. KISQALI [Suspect]
     Active Substance: RIBOCICLIB
     Dosage: (600 MG (DAILY DOSE), 21 DAYS INTAKE, THAN
     Route: 048
     Dates: end: 20190203
  4. KISQALI [Suspect]
     Active Substance: RIBOCICLIB
     Dosage: (600 MG, QD (21 DAYS INTAKE, THEN 7 DAYS PAUS
     Route: 048
     Dates: end: 20190305
  5. KISQALI [Suspect]
     Active Substance: RIBOCICLIB
     Dosage: 600 MG, QD (21 DAYS INTAKE, THEN 7 DAYS PAU
     Route: 048
     Dates: end: 20191009
  6. KISQALI [Suspect]
     Active Substance: RIBOCICLIB
     Dosage: (400 MG, QD (21 DAYS INTAKE, THEN 7 DAYS PA
     Route: 048
     Dates: end: 20191106
  7. KISQALI [Suspect]
     Active Substance: RIBOCICLIB
     Dosage: (600 MG, QD (21 DAYS INTAKE, THEN 7 DAYS PAU
     Route: 065
  8. KISQALI [Suspect]
     Active Substance: RIBOCICLIB
     Dosage: (600 MG, QD (21 DAYS INTAKE, THEN 7 DAYS P
     Route: 065
     Dates: end: 20201201
  9. KISQALI [Suspect]
     Active Substance: RIBOCICLIB
     Dosage: (400 MG, QD (21 DAYS INTAKE, THEN 7 DAYS PAU
     Route: 065
     Dates: end: 20191024
  10. KISQALI [Suspect]
     Active Substance: RIBOCICLIB
     Dosage: (600 MG (21 DAYS INTAKE, 7 DAYS PAUSE/27-DEC-201
     Route: 065
     Dates: end: 20190102
  11. KISQALI [Suspect]
     Active Substance: RIBOCICLIB
     Dosage: (600 MG, QD (21 DAYS INTAKE, THEN 7 DAYS PA
     Route: 065
     Dates: end: 20210208
  12. KISQALI [Suspect]
     Active Substance: RIBOCICLIB
     Dosage: (600 MG, QD (21 DAYS INTAKE, THEN 7 DAYS PAUSE)/09-FEB-2021
     Route: 065
  13. KISQALI [Suspect]
     Active Substance: RIBOCICLIB
     Dosage: 600 MG, QD (21 DAYS INTAKE, THEN 7 DAYS PAUSE)
     Route: 048
     Dates: start: 20190206, end: 20190305
  14. KISQALI [Suspect]
     Active Substance: RIBOCICLIB
     Dosage: 600 MG (DAILY DOSE), 21 DAAYS INTAKE, THAN 7 DA
     Route: 048
     Dates: start: 20190115, end: 20190203
  15. XGEVA [Concomitant]
     Active Substance: DENOSUMAB
     Indication: Product used for unknown indication
     Dosage: START DATE: 22-JUL-2019
     Route: 065
     Dates: start: 20190722

REACTIONS (13)
  - Polyneuropathy [Unknown]
  - Osteoarthritis [Recovered/Resolved]
  - Lymphopenia [Recovering/Resolving]
  - Leukopenia [Unknown]
  - Neutropenia [Recovering/Resolving]
  - Urinary tract infection [Recovered/Resolved]
  - Alanine aminotransferase increased [Recovered/Resolved]
  - Gamma-glutamyltransferase increased [Recovering/Resolving]
  - Arthralgia [Not Recovered/Not Resolved]
  - Nasopharyngitis [Recovered/Resolved]
  - Posture abnormal [Not Recovered/Not Resolved]
  - Pruritus [Not Recovered/Not Resolved]
  - Alopecia [Not Recovered/Not Resolved]

NARRATIVE: CASE EVENT DATE: 20190115
